FAERS Safety Report 7502100-6 (Version None)
Quarter: 2011Q2

REPORT INFORMATION
  Report Type: 
  Country: None (occurrence: None)
  Receive Date: 20110523
  Receipt Date: 20110523
  Transmission Date: 20111010
  Serious: Yes (Death)
  Sender: FDA-Public Use
  Company Number: None

PATIENT
  Age: 54 Year
  Sex: Female
  Weight: 89 kg

DRUGS (2)
  1. LOVENOX [Suspect]
     Indication: THROMBOSIS PROPHYLAXIS
     Dosage: 40MG Q24H SQ
     Dates: start: 20110412, end: 20110413
  2. LOVENOX [Suspect]
     Indication: ATRIAL FIBRILLATION
     Dosage: 90MG Q12H SQ
     Dates: start: 20110414, end: 20110421

REACTIONS (7)
  - RENAL FAILURE ACUTE [None]
  - MUSCLE HAEMORRHAGE [None]
  - POST PROCEDURAL COMPLICATION [None]
  - GENERAL PHYSICAL HEALTH DETERIORATION [None]
  - PANCYTOPENIA [None]
  - RETROPERITONEAL HAEMATOMA [None]
  - SHOCK HAEMORRHAGIC [None]
